FAERS Safety Report 7031653-X (Version None)
Quarter: 2010Q4

REPORT INFORMATION
  Report Type: 
  Country: None (occurrence: None)
  Receive Date: 20101006
  Receipt Date: 20101006
  Transmission Date: 20110411
  Serious: Yes (Other)
  Sender: FDA-Public Use
  Company Number: None

PATIENT
  Age: 71 Year
  Sex: Female
  Weight: 62.5964 kg

DRUGS (1)
  1. PIROXICAM [Suspect]
     Indication: ARTHRALGIA
     Dosage: THREW IT OUT
     Dates: start: 20100206, end: 20100706

REACTIONS (2)
  - CHILLS [None]
  - DEPRESSION [None]
